FAERS Safety Report 6615456-3 (Version None)
Quarter: 2010Q1

REPORT INFORMATION
  Report Type: 
  Country: None (occurrence: None)
  Receive Date: 20100305
  Receipt Date: 20100222
  Transmission Date: 20100710
  Serious: Yes (Death)
  Sender: FDA-Public Use
  Company Number: US-JNJFOC-20100209890

PATIENT
  Age: 37 Year
  Sex: Male

DRUGS (2)
  1. REOPRO [Suspect]
     Indication: MYOCARDIAL INFARCTION
     Route: 042
  2. ENOXAPARIN SODIUM [Concomitant]
     Indication: DRUG USE FOR UNKNOWN INDICATION

REACTIONS (1)
  - RETROPERITONEAL HAEMORRHAGE [None]
